FAERS Safety Report 5145145-6 (Version None)
Quarter: 2006Q4

REPORT INFORMATION
  Report Type: 
  Country: None (occurrence: None)
  Receive Date: 20061107
  Receipt Date: 20060308
  Transmission Date: 20070319
  Serious: Yes (Hospitalization)
  Sender: FDA-Public Use
  Company Number: US-ELI_LILLY_AND_COMPANY-US200606001671

PATIENT
  Age: 60 Year
  Sex: Female

DRUGS (4)
  1. ZYPREXA [Suspect]
     Dosage: 10 MG, UNK
     Dates: start: 20020101, end: 20030101
  2. ZYPREXA [Suspect]
     Dosage: 10 MG, UNK
     Dates: start: 20030301, end: 20030301
  3. DIVALPROEX SODIUM [Concomitant]
     Dates: start: 20020101, end: 20031201
  4. PREDNISONE TAB [Concomitant]
     Dates: start: 20010101, end: 20021201

REACTIONS (6)
  - ANGIOPLASTY [None]
  - CARDIAC FAILURE CONGESTIVE [None]
  - DIABETES MELLITUS [None]
  - HYPERTENSION [None]
  - METABOLIC DISORDER [None]
  - RENAL FAILURE [None]
